FAERS Safety Report 16706318 (Version 3)
Quarter: 2019Q3

REPORT INFORMATION
  Report Type: Spontaneous
  Country: AU (occurrence: AU)
  Receive Date: 20190815
  Receipt Date: 20190927
  Transmission Date: 20191004
  Serious: Yes (Other)
  Sender: FDA-Public Use
  Company Number: PHHY2019AU187196

PATIENT
  Age: 56 Year
  Sex: Male

DRUGS (1)
  1. APO-DICLOFENAC [Suspect]
     Active Substance: DICLOFENAC
     Indication: TESTICULAR PAIN
     Dosage: UNK
     Route: 048

REACTIONS (1)
  - Haemorrhage [Recovered/Resolved]

NARRATIVE: CASE EVENT DATE: 20190809
